FAERS Safety Report 7425768-1 (Version None)
Quarter: 2011Q2

REPORT INFORMATION
  Report Type: 
  Country: None (occurrence: None)
  Receive Date: 20110420
  Receipt Date: 20110414
  Transmission Date: 20111010
  Serious: Yes (Other)
  Sender: FDA-Public Use
  Company Number: FR-SANOFI-AVENTIS-2011SA018649

PATIENT
  Age: 74 Year
  Sex: Male

DRUGS (8)
  1. ARACYTINE [Suspect]
     Indication: LYMPHOMA
     Route: 042
     Dates: start: 20110309, end: 20110309
  2. POLARAMINE [Concomitant]
     Route: 065
     Dates: start: 20110308, end: 20110308
  3. DEXAMETHASONE [Concomitant]
     Indication: LYMPHOMA
     Route: 048
     Dates: start: 20110310, end: 20110311
  4. SOLUDECADRON [Concomitant]
     Indication: PROPHYLAXIS
     Route: 065
     Dates: start: 20110309, end: 20110309
  5. SOLU-MEDROL [Concomitant]
     Indication: PROPHYLAXIS
     Route: 065
     Dates: start: 20110308, end: 20110308
  6. ELOXATIN [Suspect]
     Indication: LYMPHOMA
     Route: 042
     Dates: start: 20110308, end: 20110309
  7. MABTHERA [Suspect]
     Indication: LYMPHOMA
     Route: 042
     Dates: start: 20110308
  8. ZOPHREN [Concomitant]
     Route: 065

REACTIONS (3)
  - OXYGEN SATURATION DECREASED [None]
  - HYPOTENSION [None]
  - PYREXIA [None]
